FAERS Safety Report 5598109-2 (Version None)
Quarter: 2008Q1

REPORT INFORMATION
  Report Type: 
  Country: None (occurrence: None)
  Receive Date: 20080122
  Receipt Date: 20080114
  Transmission Date: 20080703
  Serious: Yes (Hospitalization)
  Sender: FDA-Public Use
  Company Number: PHRM2008FR00596

PATIENT
  Age: 87 Year
  Sex: Male

DRUGS (4)
  1. ZOMETA [Suspect]
     Indication: METASTASES TO BONE
     Dosage: 4 MG EVERY 4 WEEKS
     Route: 042
     Dates: start: 20041206, end: 20070607
  2. CLASTOBAN [Concomitant]
     Dates: start: 20070705, end: 20070705
  3. ANANDRON [Concomitant]
     Dosage: 150 MG/DAY
     Dates: start: 20060701, end: 20071115
  4. DECAPEPTYL - SLOW RELEASE [Concomitant]
     Dosage: 1 AMP VERY 12 WEEKS
     Dates: start: 20020101

REACTIONS (4)
  - BONE DENSITY DECREASED [None]
  - GINGIVAL ULCERATION [None]
  - OSTEONECROSIS [None]
  - PAIN IN JAW [None]
